FAERS Safety Report 4342322-9 (Version None)
Quarter: 2004Q2

REPORT INFORMATION
  Report Type: 
  Country: None (occurrence: None)
  Receive Date: 20040413
  Receipt Date: 20040406
  Transmission Date: 20050107
  Serious: Yes (Death)
  Sender: FDA-Public Use
  Company Number: 2004207973NL

PATIENT
  Age: 68 Year
  Sex: Female

DRUGS (5)
  1. CELEBREX [Suspect]
     Indication: PERITONEAL CARCINOMA
     Dosage: 400 MG, BID, ORAL
     Route: 048
     Dates: start: 20031217, end: 20040210
  2. CARBOPLATIN [Suspect]
     Indication: PERITONEAL CARCINOMA
     Dosage: EVERY 3, WEEKLY
     Dates: start: 20031217, end: 20040210
  3. DOCETAXEL (DOCETAXEL) [Suspect]
     Indication: PERITONEAL CARCINOMA
     Dosage: EVERY 3, WEEKLY
     Dates: start: 20031217, end: 20040210
  4. AUGMENTIN ORAL [Concomitant]
  5. PANTOZOL (PANTOPRAZOLE SODIUM) [Concomitant]

REACTIONS (2)
  - BRONCHOPLEURAL FISTULA [None]
  - RESPIRATORY FAILURE [None]
